FAERS Safety Report 4352568-1 (Version None)
Quarter: 2004Q2

REPORT INFORMATION
  Report Type: 
  Country: None (occurrence: None)
  Receive Date: 20040427
  Receipt Date: 20040322
  Transmission Date: 20050107
  Serious: No
  Sender: FDA-Public Use
  Company Number: WAES 0403USA01995

PATIENT
  Sex: Female

DRUGS (3)
  1. EMEND [Suspect]
     Dosage: 125 MG/1X/PO
     Route: 048
  2. [THERAPY UNSPECIFIED] [Concomitant]
  3. ANTINEOPLASTIC (UNSPECIFIED) [Concomitant]

REACTIONS (2)
  - ASTHENIA [None]
  - HEADACHE [None]
